FAERS Safety Report 17047501 (Version 7)
Quarter: 2021Q1

REPORT INFORMATION
  Report Type: Spontaneous
  Country: US (occurrence: US)
  Receive Date: 20191119
  Receipt Date: 20210225
  Transmission Date: 20210419
  Serious: Yes (Hospitalization, Other)
  Sender: FDA-Public Use
  Company Number: US-PFIZER INC-2019494318

PATIENT
  Age: 77 Year
  Sex: Female

DRUGS (5)
  1. PREMARIN [Suspect]
     Active Substance: ESTROGENS, CONJUGATED
     Indication: VAGINAL PESSARY INSERTION
     Dosage: 1 G, 2X/WEEK, (USE 1 GRAM TWICE WEEKLY)
     Route: 067
  2. PREMARIN [Suspect]
     Active Substance: ESTROGENS, CONJUGATED
     Indication: ATROPHIC VULVOVAGINITIS
     Dosage: WENT TO THE SECOND NOTCH ON THE TUBE, TWICE A WEEK
  3. PREMARIN [Suspect]
     Active Substance: ESTROGENS, CONJUGATED
     Dosage: 1 G, 2X/DAY (1GRAM BID (TWICE A DAY))
     Route: 067
  4. PREMARIN [Suspect]
     Active Substance: ESTROGENS, CONJUGATED
     Indication: UTERINE PROLAPSE
     Dosage: WENT TO THE SECOND NOTCH ON THE TUBE, TWICE A WEEK
  5. PREMARIN [Suspect]
     Active Substance: ESTROGENS, CONJUGATED
     Indication: INCONTINENCE
     Dosage: WENT TO THE SECOND NOTCH ON THE TUBE, TWICE A WEEK

REACTIONS (20)
  - Tremor [Unknown]
  - Frustration tolerance decreased [Unknown]
  - Memory impairment [Unknown]
  - Impaired driving ability [Unknown]
  - Gait disturbance [Unknown]
  - Skin fissures [Unknown]
  - Hypoacusis [Unknown]
  - Bladder disorder [Unknown]
  - Wrong technique in product usage process [Unknown]
  - Hip fracture [Unknown]
  - Cataract [Unknown]
  - Vaginal haemorrhage [Unknown]
  - Dementia [Unknown]
  - Nervousness [Unknown]
  - Haemorrhoids [Unknown]
  - Off label use [Unknown]
  - Overdose [Unknown]
  - Speech disorder [Unknown]
  - Asthenia [Unknown]
  - Hypoaesthesia [Unknown]

NARRATIVE: CASE EVENT DATE: 2019
